FAERS Safety Report 5336196-7 (Version None)
Quarter: 2007Q2

REPORT INFORMATION
  Report Type: 
  Country: None (occurrence: None)
  Receive Date: 20070315
  Receipt Date: 20070111
  Transmission Date: 20071010
  Serious: No
  Sender: FDA-Public Use
  Company Number: BDI-009018

PATIENT
  Age: 49 Year
  Sex: Male

DRUGS (2)
  1. MULTIHANCE [Suspect]
     Indication: ISCHAEMIA
     Dosage: 40 ML ONCE IV
     Route: 042
     Dates: start: 20070111, end: 20070111
  2. MULTIHANCE [Suspect]
     Indication: NUCLEAR MAGNETIC RESONANCE IMAGING
     Dosage: 40 ML ONCE IV
     Route: 042
     Dates: start: 20070111, end: 20070111

REACTIONS (1)
  - HYPERSENSITIVITY [None]
